FAERS Safety Report 8458112-1 (Version None)
Quarter: 2012Q2

REPORT INFORMATION
  Report Type: 
  Country: None (occurrence: None)
  Receive Date: 20120615
  Receipt Date: 20120607
  Transmission Date: 20120825
  Serious: Yes (Hospitalization, Other)
  Sender: FDA-Public Use
  Company Number: 135241

PATIENT
  Age: 24 Year
  Sex: Male

DRUGS (2)
  1. MIDAZOLAM HCL [Suspect]
     Dosage: 150MG ORAL
     Route: 048
  2. ONDANSETRON [Suspect]
     Dosage: 40MGORAL
     Route: 048

REACTIONS (8)
  - PULSELESS ELECTRICAL ACTIVITY [None]
  - TOXICITY TO VARIOUS AGENTS [None]
  - BLOOD PRESSURE DECREASED [None]
  - VENTRICULAR FIBRILLATION [None]
  - NODAL RHYTHM [None]
  - MULTIPLE DRUG OVERDOSE [None]
  - OVERDOSE [None]
  - LOSS OF CONSCIOUSNESS [None]
